FAERS Safety Report 23671063 (Version 1)
Quarter: 2024Q1

REPORT INFORMATION
  Report Type: Spontaneous
  Country: FR (occurrence: FR)
  Receive Date: 20240326
  Receipt Date: 20240326
  Transmission Date: 20240409
  Serious: Yes (Other)
  Sender: FDA-Public Use
  Company Number: FR-CELLTRION INC.-2024FR007071

PATIENT

DRUGS (3)
  1. TRUXIMA [Suspect]
     Active Substance: RITUXIMAB-ABBS
     Indication: Adult T-cell lymphoma/leukaemia recurrent
     Dosage: 375 MG/M2, EVERY 1 CYCLE
     Route: 042
     Dates: start: 20200624, end: 20200805
  2. BENDAMUSTINE [Suspect]
     Active Substance: BENDAMUSTINE
     Indication: Adult T-cell lymphoma/leukaemia recurrent
     Dosage: 180 MG/M2, EVERY 1 CYCLE
     Route: 042
     Dates: start: 20200624, end: 20200815
  3. POLATUZUMAB VEDOTIN [Suspect]
     Active Substance: POLATUZUMAB VEDOTIN
     Indication: Adult T-cell lymphoma/leukaemia recurrent
     Dosage: 1.8 MG/KG, EVERY 1 CYCLE
     Route: 042
     Dates: start: 20200629, end: 20200805

REACTIONS (2)
  - Bicytopenia [Recovering/Resolving]
  - Intentional product use issue [Unknown]

NARRATIVE: CASE EVENT DATE: 20200723
